FAERS Safety Report 18750711 (Version 1)
Quarter: 2021Q1

REPORT INFORMATION
  Report Type: Spontaneous
  Country: CA (occurrence: CA)
  Receive Date: 20210118
  Receipt Date: 20210118
  Transmission Date: 20210419
  Serious: Yes (Death)
  Sender: FDA-Public Use
  Company Number: CA-TEVA-2021-CA-1868111

PATIENT
  Age: 27 Year
  Sex: Female

DRUGS (4)
  1. PREGABALIN(MANUFACTURER UNKNOWN) [Suspect]
     Active Substance: PREGABALIN
     Indication: DEPRESSION
     Dosage: 150 MILLIGRAM DAILY;
     Route: 048
  2. PREGABALIN(MANUFACTURER UNKNOWN) [Suspect]
     Active Substance: PREGABALIN
     Dosage: 300 MILLIGRAM DAILY;
     Route: 048
  3. IMIPRAMINE [Concomitant]
     Active Substance: IMIPRAMINE
  4. SERTRALINE [Concomitant]
     Active Substance: SERTRALINE HYDROCHLORIDE

REACTIONS (1)
  - Completed suicide [Fatal]
